FAERS Safety Report 15212979 (Version 3)
Quarter: 2019Q1

REPORT INFORMATION
  Report Type: Spontaneous
  Country: JP (occurrence: JP)
  Receive Date: 20180730
  Receipt Date: 20190220
  Transmission Date: 20190417
  Serious: Yes (Hospitalization, Other)
  Sender: FDA-Public Use
  Company Number: JP-CONCORDIA PHARMACEUTICALS INC.-E2B_00014736

PATIENT
  Age: 70 Year
  Sex: Female
  Weight: 41.3 kg

DRUGS (3)
  1. PREDNISOLONE. [Suspect]
     Active Substance: PREDNISOLONE
     Indication: POLYMYALGIA RHEUMATICA
     Route: 048
  2. PREDNISOLONE. [Suspect]
     Active Substance: PREDNISOLONE
     Dosage: RAISED
  3. PREDNISOLONE. [Suspect]
     Active Substance: PREDNISOLONE
     Dosage: TAPERED GRADUALLY

REACTIONS (4)
  - Bezold abscess [Recovered/Resolved]
  - Lemierre syndrome [Recovered/Resolved]
  - Parkinson^s disease [Unknown]
  - Streptococcal infection [Recovered/Resolved]
